FAERS Safety Report 9299919 (Version 2)
Quarter: 2013Q1

REPORT INFORMATION
  Report Type: Spontaneous
  Country: US (occurrence: None)
  Receive Date: 20121106
  Receipt Date: 20121231
  Transmission Date: 20140127
  Serious: Yes (Hospitalization, Other)
  Sender: FDA-Public Use
  Company Number: JPI-P-012791

PATIENT
  Age: 50 Year
  Sex: Male

DRUGS (19)
  1. XYREM (500 MILLIGRAM/MILLILITERS, SOLUTION) (SODIUM OXYBATE) [Suspect]
     Indication: INSOMNIA
     Dosage: (2.25 GM, 2 IN 1 D)
     Route: 048
     Dates: start: 20100513, end: 201006
  2. ALPRAZOLAM [Suspect]
     Indication: PRODUCT USED FOR UNKNOWN INDICATION
     Dates: end: 201010
  3. PHENERGAN W/ CODEINE [Suspect]
     Indication: PRODUCT USED FOR UNKNOWN INDICATION
  4. ZOLPIDEM [Suspect]
     Indication: PRODUCT USED FOR UNKNOWN INDICATION
  5. FLUOXETINE [Suspect]
     Indication: PRODUCT USED FOR UNKNOWN INDICATION
  6. DOXEPIN [Suspect]
     Indication: PRODUCT USED FOR UNKNOWN INDICATION
  7. GABAPENTIN [Suspect]
     Indication: PRODUCT USED FOR UNKNOWN INDICATION
  8. FLURAZEPAM [Concomitant]
  9. CARISOPRODOL [Concomitant]
  10. HYDROCODONE/ACETAMINOPHEN [Concomitant]
  11. LORAZEPAM [Concomitant]
  12. MELATONIN [Concomitant]
  13. ZOLMITRIPTAN [Concomitant]
  14. SIMVASTATIN [Concomitant]
  15. MOMETASONE [Concomitant]
  16. IBUPROFEN [Concomitant]
  17. SUMATRIPTAN [Concomitant]
  18. VENLAFAXINE [Concomitant]
  19. AMITRIPTYLINE [Concomitant]

REACTIONS (13)
  - Confusional state [None]
  - Feeling abnormal [None]
  - Headache [None]
  - Nausea [None]
  - Weight decreased [None]
  - Drug tolerance [None]
  - Drug effect decreased [None]
  - Mental status changes [None]
  - Insomnia [None]
  - Stress [None]
  - Blood pressure increased [None]
  - Multiple allergies [None]
  - Paraesthesia [None]
